FAERS Safety Report 11690356 (Version 1)
Quarter: 2015Q4

REPORT INFORMATION
  Report Type: Spontaneous
  Country: PR (occurrence: PR)
  Receive Date: 20151102
  Receipt Date: 20151102
  Transmission Date: 20160304
  Serious: Yes (Other)
  Sender: FDA-Public Use
  Company Number: PR-BAYER-2015-456262

PATIENT
  Age: 69 Year
  Sex: Female

DRUGS (2)
  1. ULTRAVIST [Suspect]
     Active Substance: IOPROMIDE
     Indication: COMPUTERISED TOMOGRAM ABDOMEN
  2. ULTRAVIST [Suspect]
     Active Substance: IOPROMIDE
     Indication: COMPUTERISED TOMOGRAM PELVIS
     Dosage: 96 ML, ONCE
     Route: 042
     Dates: start: 20151026, end: 20151026

REACTIONS (6)
  - Hypertension [Recovering/Resolving]
  - Feeling abnormal [Recovering/Resolving]
  - Face oedema [Recovering/Resolving]
  - Localised oedema [Recovering/Resolving]
  - Eye oedema [Recovering/Resolving]
  - Headache [Recovering/Resolving]

NARRATIVE: CASE EVENT DATE: 201510
